FAERS Safety Report 5073476-7 (Version None)
Quarter: 2006Q3

REPORT INFORMATION
  Report Type: 
  Country: None (occurrence: None)
  Receive Date: 20060808
  Receipt Date: 20060727
  Transmission Date: 20061208
  Serious: Yes (Hospitalization, Other)
  Sender: FDA-Public Use
  Company Number: FR-BRISTOL-MYERS SQUIBB COMPANY-13458245

PATIENT
  Age: 40 Year
  Sex: Female
  Weight: 67 kg

DRUGS (6)
  1. REYATAZ [Suspect]
     Indication: ACQUIRED IMMUNODEFICIENCY SYNDROME
     Dosage: INTERRUPTED ON 02-AUG-2005, RECHALLENGED ON 20-OCT-2005
     Route: 048
     Dates: start: 20040518, end: 20060705
  2. NORVIR [Suspect]
     Indication: ACQUIRED IMMUNODEFICIENCY SYNDROME
     Dosage: INTERRUPTED ON 02-AUG-2005, RECHALLENGED ON 20-OCT-2005
     Dates: start: 20040518, end: 20060705
  3. EMTRIVA [Suspect]
     Indication: ACQUIRED IMMUNODEFICIENCY SYNDROME
     Dosage: INTERRUPTED ON 02-AUG-2005, RECHALLENGED ON 20-OCT-2005
     Dates: start: 20040803, end: 20060705
  4. SEROPRAM [Concomitant]
  5. LEXOMIL [Concomitant]
  6. VIDEX [Concomitant]
     Dates: start: 20051020

REACTIONS (4)
  - ABORTION INDUCED [None]
  - BONE DISORDER [None]
  - HYPOPHOSPHATAEMIA [None]
  - PREGNANCY [None]
